FAERS Safety Report 4364467-X (Version None)
Quarter: 2004Q2

REPORT INFORMATION
  Report Type: 
  Country: None (occurrence: None)
  Receive Date: 20040525
  Receipt Date: 20040513
  Transmission Date: 20050107
  Serious: Yes (Other)
  Sender: FDA-Public Use
  Company Number: GB-GLAXOSMITHKLINE-B0332815A

PATIENT
  Age: 49 Year
  Sex: Female
  Weight: 55 kg

DRUGS (3)
  1. PAROXETINE HYDROCHLORIDE [Suspect]
     Indication: DEPRESSION
     Dosage: 1UNIT PER DAY
     Route: 048
     Dates: start: 20000218, end: 20000223
  2. AMOXICILLIN [Concomitant]
     Dosage: 1UNIT THREE TIMES PER DAY
     Route: 065
     Dates: start: 20000223
  3. FLUOXETINE HCL [Concomitant]
     Dosage: 1UNIT PER DAY
     Route: 065
     Dates: start: 20000229

REACTIONS (1)
  - HALLUCINATION, VISUAL [None]
